FAERS Safety Report 7729029-2 (Version None)
Quarter: 2011Q3

REPORT INFORMATION
  Report Type: 
  Country: None (occurrence: None)
  Receive Date: 20110906
  Receipt Date: 20110826
  Transmission Date: 20111222
  Serious: Yes (Other)
  Sender: FDA-Public Use
  Company Number: US-JNJFOC-20110812439

PATIENT
  Sex: Female

DRUGS (2)
  1. REMICADE [Suspect]
     Indication: COLITIS ULCERATIVE
     Route: 042
     Dates: start: 20070101
  2. STEROIDS NOS [Concomitant]
     Indication: PROPHYLAXIS
     Route: 065
     Dates: start: 20070101

REACTIONS (2)
  - BREAST CANCER [None]
  - ADVERSE EVENT [None]
